FAERS Safety Report 13914501 (Version 1)
Quarter: 2017Q3

REPORT INFORMATION
  Report Type: Spontaneous
  Country: GB (occurrence: GB)
  Receive Date: 20170828
  Receipt Date: 20170828
  Transmission Date: 20171127
  Serious: Yes (Other)
  Sender: FDA-Public Use
  Company Number: GB-GILEAD-2017-0290016

PATIENT
  Age: 56 Year
  Sex: Male

DRUGS (4)
  1. ATAZANAVIR [Suspect]
     Active Substance: ATAZANAVIR
     Indication: PRODUCT USED FOR UNKNOWN INDICATION
     Route: 065
  2. TRUVADA [Suspect]
     Active Substance: EMTRICITABINE\TENOFOVIR DISOPROXIL FUMARATE
     Indication: PRODUCT USED FOR UNKNOWN INDICATION
     Route: 065
  3. KENALOG [Interacting]
     Active Substance: TRIAMCINOLONE ACETONIDE
     Indication: PAIN
     Route: 065
     Dates: start: 20160801, end: 20160801
  4. RITONAVIR. [Suspect]
     Active Substance: RITONAVIR
     Indication: PRODUCT USED FOR UNKNOWN INDICATION
     Route: 065

REACTIONS (6)
  - Oropharyngeal pain [Unknown]
  - Labelled drug-drug interaction medication error [Unknown]
  - Cortisol decreased [Unknown]
  - Oropharyngeal candidiasis [Unknown]
  - Wrong drug administered [Unknown]
  - Malaise [Unknown]

NARRATIVE: CASE EVENT DATE: 20160801
